FAERS Safety Report 13707239 (Version 1)
Quarter: 2017Q2

REPORT INFORMATION
  Report Type: Report from Study
  Country: US (occurrence: US)
  Receive Date: 20170630
  Receipt Date: 20170630
  Transmission Date: 20170830
  Serious: Yes (Other)
  Sender: FDA-Public Use
  Company Number: US-LEO PHARMA-286502

PATIENT
  Sex: Female

DRUGS (2)
  1. PROTOPIC [Suspect]
     Active Substance: TACROLIMUS
     Indication: DERMATITIS ATOPIC
     Dosage: 0.1 %, UNKNOWN FREQ.
     Route: 061
     Dates: start: 20071020
  2. VASELINE                           /00473501/ [Concomitant]
     Indication: DERMATITIS ATOPIC
     Dosage: UNK UNK, UNKNOWN FREQ.
     Route: 065

REACTIONS (2)
  - Staphylococcal infection [Unknown]
  - Fibula fracture [Unknown]
